FAERS Safety Report 5041603-3 (Version None)
Quarter: 2006Q2

REPORT INFORMATION
  Report Type: 
  Country: None (occurrence: None)
  Receive Date: 20060601
  Receipt Date: 20060226
  Transmission Date: 20061013
  Serious: No
  Sender: FDA-Public Use
  Company Number: 2006PV009400

PATIENT
  Age: 49 Year
  Sex: Female
  Weight: 97.5234 kg

DRUGS (1)
  1. BYETTA [Suspect]
     Dosage: 5 MCG; BID; SC
     Route: 058
     Dates: start: 20060225

REACTIONS (4)
  - FATIGUE [None]
  - HEARING IMPAIRED [None]
  - HYPERHIDROSIS [None]
  - VERTIGO [None]
